FAERS Safety Report 8127258-X (Version None)
Quarter: 2012Q1

REPORT INFORMATION
  Report Type: 
  Country: None (occurrence: None)
  Receive Date: 20120210
  Receipt Date: 20120127
  Transmission Date: 20120608
  Serious: Yes (Other)
  Sender: FDA-Public Use
  Company Number: US-RANBAXY-2012US-52377

PATIENT
  Age: 44 Year
  Sex: Female

DRUGS (6)
  1. NEFAZODONE HCL [Suspect]
     Indication: PRODUCT USED FOR UNKNOWN INDICATION
     Dosage: 150 MG, BID
     Route: 065
  2. SIROLIMUS [Interacting]
     Dosage: 1 MG, EVERY OTHER DAY
     Route: 065
     Dates: start: 20030901
  3. SIROLIMUS [Interacting]
     Indication: PRODUCT USED FOR UNKNOWN INDICATION
     Dosage: UNK
     Route: 065
     Dates: start: 20030101
  4. SIROLIMUS [Interacting]
     Dosage: 1 MG, DAILY
     Route: 065
  5. NEFAZODONE HCL [Interacting]
     Dosage: 300 MG, BID
     Route: 065
  6. SIROLIMUS [Interacting]
     Dosage: 2 MG, DAILY
     Route: 065

REACTIONS (2)
  - DRUG INTERACTION [None]
  - DRUG LEVEL DECREASED [None]
